FAERS Safety Report 15125515 (Version 4)
Quarter: 2018Q4

REPORT INFORMATION
  Report Type: Report from Study
  Country: CN (occurrence: CN)
  Receive Date: 20180710
  Receipt Date: 20181129
  Transmission Date: 20190204
  Serious: Yes (Hospitalization)
  Sender: FDA-Public Use
  Company Number: CN-ROCHE-2149937

PATIENT
  Age: 53 Year
  Sex: Female
  Weight: 51.8 kg

DRUGS (20)
  1. CEFTRIAXONE SODIUM. [Concomitant]
     Active Substance: CEFTRIAXONE SODIUM
     Route: 050
     Dates: start: 20180624, end: 20180626
  2. JADE SCREEN [Concomitant]
     Route: 048
     Dates: start: 20180626, end: 20180626
  3. FLUNARIZINE [Concomitant]
     Active Substance: FLUNARIZINE
     Route: 048
     Dates: start: 20180628, end: 20180628
  4. POTASSIUM CHLORIDE. [Concomitant]
     Active Substance: POTASSIUM CHLORIDE
     Route: 048
     Dates: start: 20180701, end: 20180701
  5. INDOMETACIN [Concomitant]
     Active Substance: INDOMETHACIN
     Route: 054
     Dates: start: 20180624, end: 20180625
  6. FLUNARIZINE [Concomitant]
     Active Substance: FLUNARIZINE
     Route: 048
     Dates: start: 20180627, end: 20180627
  7. SODIUM CHLORIDE. [Concomitant]
     Active Substance: SODIUM CHLORIDE
     Route: 050
     Dates: start: 20180624, end: 20180624
  8. OMEPRAZOLE SODIUM [Concomitant]
     Active Substance: OMEPRAZOLE SODIUM
     Route: 042
     Dates: start: 20180627, end: 20180727
  9. OMEPRAZOLE SODIUM [Concomitant]
     Active Substance: OMEPRAZOLE SODIUM
     Route: 042
     Dates: start: 20180624, end: 20180624
  10. POLYSACCHARIDE-IRON COMPLEX [Concomitant]
     Route: 048
     Dates: start: 20180630, end: 20180630
  11. ATEZOLIZUMAB. [Suspect]
     Active Substance: ATEZOLIZUMAB
     Indication: TRANSITIONAL CELL CARCINOMA
     Dosage: DATE OF MOST RECENT DOSE OF MONOTHERAPY ATEZOLIZUMAB PRIOR TO AE ONSET: 12/JUN/2018
     Route: 042
     Dates: start: 20180612
  12. LEVOFLOXACIN LACTATE [Concomitant]
     Active Substance: LEVOFLOXACIN LACTATE
     Route: 050
     Dates: start: 20180624, end: 20180624
  13. INDOMETACIN [Concomitant]
     Active Substance: INDOMETHACIN
     Route: 054
     Dates: start: 20180627, end: 20180629
  14. IBUPROFEN. [Concomitant]
     Active Substance: IBUPROFEN
     Route: 048
     Dates: start: 20180624, end: 20180625
  15. REBAMIPIDE [Concomitant]
     Active Substance: REBAMIPIDE
     Route: 048
     Dates: start: 20180628, end: 20180628
  16. INDOMETACIN [Concomitant]
     Active Substance: INDOMETHACIN
     Route: 054
     Dates: start: 20180701, end: 20180701
  17. GLYCERIN ENEMA OHTA [Concomitant]
     Route: 054
     Dates: start: 20180629, end: 20180629
  18. CEFOPERAZONE SODIUM/SULBACTAM SODIUM [Concomitant]
     Active Substance: CEFOPERAZONE SODIUM\SULBACTAM SODIUM
     Route: 050
     Dates: start: 20180626, end: 20180626
  19. POTASSIUM CHLORIDE. [Concomitant]
     Active Substance: POTASSIUM CHLORIDE
     Dosage: 10% POTASSIUM CHLORIDE
     Route: 048
     Dates: start: 20180701, end: 20180701
  20. INDOMETACIN [Concomitant]
     Active Substance: INDOMETHACIN
     Route: 054
     Dates: start: 20180626, end: 20180626

REACTIONS (1)
  - Tumour associated fever [Recovered/Resolved]

NARRATIVE: CASE EVENT DATE: 20180622
